FAERS Safety Report 12447725 (Version 1)
Quarter: 2016Q2

REPORT INFORMATION
  Report Type: Spontaneous
  Country: US (occurrence: US)
  Receive Date: 20160608
  Receipt Date: 20160608
  Transmission Date: 20160815
  Serious: Yes (Other)
  Sender: FDA-Public Use
  Company Number: US-AMGEN-USASP2016072204

PATIENT
  Age: 63 Year
  Sex: Female

DRUGS (1)
  1. NEULASTA [Suspect]
     Active Substance: PEGFILGRASTIM
     Indication: PRODUCT USED FOR UNKNOWN INDICATION
     Dosage: UNK
     Route: 065

REACTIONS (8)
  - Eczema [Unknown]
  - Muscle spasms [Unknown]
  - Diarrhoea [Unknown]
  - Loss of consciousness [Unknown]
  - Rash [Unknown]
  - Erythema [Unknown]
  - Adverse drug reaction [Unknown]
  - Nausea [Unknown]
